FAERS Safety Report 4560581-4 (Version None)
Quarter: 2005Q1

REPORT INFORMATION
  Report Type: 
  Country: None (occurrence: None)
  Receive Date: 20050125
  Receipt Date: 20050121
  Transmission Date: 20050727
  Serious: Yes (Life-Threatening, Hospitalization)
  Sender: FDA-Public Use
  Company Number: PHBS2005CH01188

PATIENT
  Age: 55 Year
  Sex: Male

DRUGS (3)
  1. LESCOL [Suspect]
     Indication: HYPERLIPIDAEMIA
  2. CELEBREX [Suspect]
     Indication: PAIN
  3. ACETAMINOPHEN [Suspect]
     Indication: PAIN

REACTIONS (4)
  - CONDITION AGGRAVATED [None]
  - OPERATIVE HAEMORRHAGE [None]
  - PSEUDOMONAS INFECTION [None]
  - THROMBOCYTOPENIA [None]
